FAERS Safety Report 10512487 (Version 3)
Quarter: 2015Q2

REPORT INFORMATION
  Report Type: Spontaneous
  Country: MX (occurrence: MX)
  Receive Date: 20141011
  Receipt Date: 20150422
  Transmission Date: 20150821
  Serious: Yes (Other)
  Sender: FDA-Public Use
  Company Number: PHHY2014MX019292

PATIENT
  Age: 51 Year
  Sex: Female

DRUGS (3)
  1. TEGRETOL [Suspect]
     Active Substance: CARBAMAZEPINE
     Dosage: 200 MG, BID
     Route: 048
  2. TAFIROL [Concomitant]
     Indication: PAIN IN EXTREMITY
     Dosage: 2 DF, UNK
  3. TEGRETOL [Suspect]
     Active Substance: CARBAMAZEPINE
     Indication: EPILEPSY
     Dosage: 600 MG, DAILY (200 MG IN THE MORNING AND 400 MG AT NIGHT)
     Route: 048

REACTIONS (9)
  - Fall [Unknown]
  - Maternal exposure during pregnancy [Unknown]
  - Thrombosis [Unknown]
  - Memory impairment [Unknown]
  - Crying [Unknown]
  - Nerve injury [Unknown]
  - Somnolence [Unknown]
  - Seizure [Unknown]
  - Headache [Unknown]
